FAERS Safety Report 4769831-2 (Version None)
Quarter: 2005Q3

REPORT INFORMATION
  Report Type: 
  Country: None (occurrence: None)
  Receive Date: 20050912
  Receipt Date: 20050617
  Transmission Date: 20060218
  Serious: No
  Sender: FDA-Public Use
  Company Number: 2004-00397

PATIENT
  Age: 65 Year
  Sex: Male
  Weight: 78.1 kg

DRUGS (6)
  1. VELCADE [Suspect]
     Indication: MULTIPLE MYELOMA
     Dosage: 2.70 MG, INTRAVENOUS; 2.60 MG
     Route: 042
     Dates: start: 20040901, end: 20041001
  2. VELCADE [Suspect]
     Indication: MULTIPLE MYELOMA
     Dosage: 2.70 MG, INTRAVENOUS; 2.60 MG
     Route: 042
     Dates: start: 20040601
  3. . [Concomitant]
  4. WARFARIN [Concomitant]
  5. AREDIA [Concomitant]
  6. SYNTHROID [Concomitant]

REACTIONS (8)
  - BACK PAIN [None]
  - BONE PAIN [None]
  - CHILLS [None]
  - FATIGUE [None]
  - PLATELET COUNT DECREASED [None]
  - PYREXIA [None]
  - TREMOR [None]
  - WHITE BLOOD CELL COUNT DECREASED [None]
